FAERS Safety Report 9752056 (Version 1)
Quarter: 2013Q4

REPORT INFORMATION
  Report Type: Spontaneous
  Country: IT (occurrence: IT)
  Receive Date: 20131213
  Receipt Date: 20131213
  Transmission Date: 20140711
  Serious: Yes (Other)
  Sender: FDA-Public Use
  Company Number: IT-ACCORD-020725

PATIENT
  Age: 48 Year
  Sex: Female
  Weight: 100 kg

DRUGS (1)
  1. DOCETAXEL [Suspect]
     Indication: INVASIVE DUCTAL BREAST CARCINOMA
     Dosage: CONCENTRATE FOR SOLUTION FOR INFUSION- INTRAVENOUS USE- 1 AMPOULE (GLASS) - 4 ML 1 AMPOULE
     Route: 042
     Dates: start: 20131031, end: 20131031

REACTIONS (6)
  - Folliculitis [Unknown]
  - Aphthous stomatitis [Unknown]
  - Mucosal inflammation [Unknown]
  - Rash generalised [Unknown]
  - Diarrhoea [Unknown]
  - Oedema [Unknown]
